FAERS Safety Report 22625138 (Version 1)
Quarter: 2023Q2

REPORT INFORMATION
  Report Type: Spontaneous
  Country: US (occurrence: US)
  Receive Date: 20230621
  Receipt Date: 20230621
  Transmission Date: 20230721
  Serious: Yes (Hospitalization)
  Sender: FDA-Public Use
  Company Number: US-PARATEK PHARMACEUTICALS, INC.-2023PTK00268

PATIENT

DRUGS (1)
  1. NUZYRA [Suspect]
     Active Substance: OMADACYCLINE
     Dosage: UNK
     Route: 065
     Dates: start: 202304

REACTIONS (5)
  - Hospitalisation [Unknown]
  - Skin exfoliation [Unknown]
  - Blister [Unknown]
  - Performance status decreased [Unknown]
  - Unevaluable event [Unknown]

NARRATIVE: CASE EVENT DATE: 20230101
